FAERS Safety Report 5774605-X (Version None)
Quarter: 2008Q2

REPORT INFORMATION
  Report Type: 
  Country: None (occurrence: None)
  Receive Date: 20080612
  Receipt Date: 20080609
  Transmission Date: 20081010
  Serious: Yes (Other)
  Sender: FDA-Public Use
  Company Number: 2008SP010768

PATIENT
  Age: 43 Year
  Sex: Male
  Weight: 74.8435 kg

DRUGS (3)
  1. PEG-INTRON [Suspect]
     Indication: HEPATITIS C
     Dosage: SC
     Route: 058
     Dates: start: 20080512
  2. REBETOL [Suspect]
     Indication: HEPATITIS C
     Dosage: PO
     Route: 048
     Dates: start: 20080512
  3. LYRICA [Suspect]
     Indication: PAIN

REACTIONS (8)
  - CONFUSIONAL STATE [None]
  - DECREASED ACTIVITY [None]
  - DEHYDRATION [None]
  - DEPRESSION [None]
  - DIZZINESS [None]
  - PAIN [None]
  - SWELLING [None]
  - WEIGHT INCREASED [None]
